FAERS Safety Report 8539503-7 (Version None)
Quarter: 2012Q3

REPORT INFORMATION
  Report Type: 
  Country: None (occurrence: None)
  Receive Date: 20120726
  Receipt Date: 20120724
  Transmission Date: 20120928
  Serious: Yes (Life-Threatening, Hospitalization)
  Sender: FDA-Public Use
  Company Number: PHHY2012CH063887

PATIENT
  Age: 68 Year
  Sex: Male
  Weight: 70 kg

DRUGS (4)
  1. AUGMENTIN '500' [Concomitant]
     Indication: CELLULITIS
     Dosage: 625 MG, TID
     Dates: start: 20120519, end: 20120529
  2. NEXIUM [Concomitant]
     Dosage: 40 MG, DAILY
     Route: 048
     Dates: start: 20120519, end: 20120501
  3. VOLTAREN [Suspect]
     Indication: CELLULITIS
     Dosage: 50 MG, BID
     Route: 048
     Dates: start: 20120519, end: 20120526
  4. MEFENAMIC ACID [Suspect]
     Indication: CELLULITIS
     Dosage: 500 MG, BID
     Route: 048
     Dates: start: 20120519, end: 20120526

REACTIONS (7)
  - CORONARY ARTERY STENOSIS [None]
  - CORONARY ARTERY DISEASE [None]
  - CORONARY ARTERY OCCLUSION [None]
  - DYSPNOEA [None]
  - CARDIAC FAILURE [None]
  - ACUTE MYOCARDIAL INFARCTION [None]
  - TROPONIN T INCREASED [None]
